FAERS Safety Report 14190684 (Version 1)
Quarter: 2017Q4

REPORT INFORMATION
  Report Type: Spontaneous
  Country: FR (occurrence: FR)
  Receive Date: 20171115
  Receipt Date: 20171115
  Transmission Date: 20180321
  Serious: Yes (Other)
  Sender: FDA-Public Use
  Company Number: FR-MERCK KGAA-2034141

PATIENT
  Age: 93 Year
  Sex: Female

DRUGS (14)
  1. EUPRESSYL [Concomitant]
     Active Substance: URAPIDIL
  2. LASILIX [Concomitant]
     Active Substance: FUROSEMIDE
  3. SPIRIVA [Concomitant]
     Active Substance: TIOTROPIUM BROMIDE MONOHYDRATE
  4. LORAZEPAM. [Concomitant]
     Active Substance: LORAZEPAM
  5. NOVOTHYROX [Suspect]
     Active Substance: LEVOTHYROXINE SODIUM
     Route: 048
     Dates: start: 201709, end: 201709
  6. NOVOTHYROX [Suspect]
     Active Substance: LEVOTHYROXINE SODIUM
     Route: 048
     Dates: start: 201709
  7. ALDACTONE [Concomitant]
     Active Substance: SPIRONOLACTONE
  8. PREVISCAN (FLUINDIONE) [Concomitant]
     Active Substance: FLUINDIONE
  9. TARDYFERON [Concomitant]
     Active Substance: FERROUS SULFATE
  10. DIAMICRON [Concomitant]
     Active Substance: GLICLAZIDE
  11. PREVISCAN (FLUINDIONE) [Concomitant]
     Active Substance: FLUINDIONE
  12. LERCAN [Concomitant]
     Active Substance: LERCANIDIPINE
  13. NOVOTHYROX [Suspect]
     Active Substance: LEVOTHYROXINE SODIUM
     Indication: THYROID DISORDER
     Route: 048
     Dates: start: 2017
  14. INEGY [Concomitant]
     Active Substance: EZETIMIBE\SIMVASTATIN

REACTIONS (7)
  - Insomnia [Not Recovered/Not Resolved]
  - Fatigue [Not Recovered/Not Resolved]
  - Blood thyroid stimulating hormone increased [Not Recovered/Not Resolved]
  - Headache [Not Recovered/Not Resolved]
  - Diffuse alopecia [Not Recovered/Not Resolved]
  - Pain in extremity [Not Recovered/Not Resolved]
  - Balance disorder [Not Recovered/Not Resolved]

NARRATIVE: CASE EVENT DATE: 201706
